FAERS Safety Report 4702871-8 (Version None)
Quarter: 2005Q3

REPORT INFORMATION
  Report Type: 
  Country: None (occurrence: None)
  Receive Date: 20050622
  Receipt Date: 20050614
  Transmission Date: 20060218
  Serious: Yes (Other)
  Sender: FDA-Public Use
  Company Number: 200511442BBE

PATIENT
  Sex: Male

DRUGS (1)
  1. TETANUS IMMUNE GLOBULIN (HUMAN) [Suspect]
     Dosage: INTRAMUSCULAR
     Route: 030

REACTIONS (1)
  - NERVOUS SYSTEM DISORDER [None]
